FAERS Safety Report 13326909 (Version 1)
Quarter: 2017Q1

REPORT INFORMATION
  Report Type: Spontaneous
  Country: US (occurrence: US)
  Receive Date: 20170312
  Receipt Date: 20170312
  Transmission Date: 20170428
  Serious: Yes (Other)
  Sender: FDA-Public Use
  Company Number: US-AMGEN-USASP2017035174

PATIENT
  Age: 36 Year
  Sex: Female

DRUGS (2)
  1. CORLANOR [Suspect]
     Active Substance: IVABRADINE HYDROCHLORIDE
     Indication: SINUS TACHYCARDIA
     Dosage: UNK
     Route: 065
     Dates: start: 201606
  2. MODAFINIL. [Suspect]
     Active Substance: MODAFINIL
     Indication: PRODUCT USED FOR UNKNOWN INDICATION
     Dosage: UNK
     Route: 065
     Dates: start: 2016

REACTIONS (8)
  - Drug dose omission [Unknown]
  - Off label use [Unknown]
  - Mobility decreased [Unknown]
  - Rocky mountain spotted fever [Unknown]
  - Lyme disease [Unknown]
  - Heart rate increased [Unknown]
  - Fatigue [Unknown]
  - Basedow^s disease [Unknown]

NARRATIVE: CASE EVENT DATE: 201608
